FAERS Safety Report 24580358 (Version 1)
Quarter: 2024Q4

REPORT INFORMATION
  Report Type: Spontaneous
  Country: EG (occurrence: EG)
  Receive Date: 20241105
  Receipt Date: 20241105
  Transmission Date: 20250114
  Serious: Yes (Other)
  Sender: BAXTER
  Company Number: EG-BAXTER-2024BAX026765

PATIENT
  Sex: Female

DRUGS (1)
  1. IFOSFAMIDE [Suspect]
     Active Substance: IFOSFAMIDE
     Indication: Neoplasm malignant
     Dosage: UNK
     Route: 042

REACTIONS (1)
  - Psychotic disorder [Recovered/Resolved]
